FAERS Safety Report 5068967-9 (Version None)
Quarter: 2006Q3

REPORT INFORMATION
  Report Type: 
  Country: None (occurrence: None)
  Receive Date: 20060802
  Receipt Date: 20060729
  Transmission Date: 20061208
  Serious: Yes (Other)
  Sender: FDA-Public Use
  Company Number: 2006UW15373

PATIENT
  Age: 37 Year
  Sex: Male
  Weight: 90 kg

DRUGS (4)
  1. NEXIUM [Suspect]
     Indication: STRESS ULCER
     Route: 042
     Dates: start: 20060711, end: 20060711
  2. FENITOINA [Concomitant]
     Indication: CONVULSION PROPHYLAXIS
     Route: 042
     Dates: start: 20060711
  3. DEXAMETASONA [Concomitant]
     Indication: BRAIN OEDEMA
     Route: 042
     Dates: start: 20060711
  4. CEFTRIAXONA [Concomitant]
     Indication: INFECTION PROPHYLAXIS
     Route: 042
     Dates: start: 20060711

REACTIONS (1)
  - BRADYCARDIA [None]
